FAERS Safety Report 25478662 (Version 1)
Quarter: 2025Q2

REPORT INFORMATION
  Report Type: Spontaneous
  Country: US (occurrence: US)
  Receive Date: 20250625
  Receipt Date: 20250625
  Transmission Date: 20250716
  Serious: No
  Sender: COSETTE PHARMACEUTICALS INC
  Company Number: US-COSETTE-CP2025US000576

PATIENT
  Age: 26 Year
  Sex: Male
  Weight: 132 kg

DRUGS (3)
  1. KETOCONAZOLE [Suspect]
     Active Substance: KETOCONAZOLE
     Indication: Skin burning sensation
     Route: 061
     Dates: start: 202504, end: 202504
  2. KETOCONAZOLE [Suspect]
     Active Substance: KETOCONAZOLE
     Indication: Pruritus
  3. KETOCONAZOLE [Suspect]
     Active Substance: KETOCONAZOLE
     Indication: Erythema

REACTIONS (4)
  - Dizziness [Recovered/Resolved]
  - Heart rate increased [Recovered/Resolved]
  - Loss of personal independence in daily activities [Recovered/Resolved]
  - Product use in unapproved indication [Unknown]

NARRATIVE: CASE EVENT DATE: 20250401
